FAERS Safety Report 5278440-0 (Version None)
Quarter: 2007Q1

REPORT INFORMATION
  Report Type: 
  Country: None (occurrence: None)
  Receive Date: 20070328
  Receipt Date: 20070319
  Transmission Date: 20070707
  Serious: Yes (Hospitalization)
  Sender: FDA-Public Use
  Company Number: PHBS2007IT04864

PATIENT
  Age: 81 Year
  Sex: Female

DRUGS (6)
  1. VOLTAREN [Suspect]
     Indication: PAIN
     Dosage: 100 MG, BID
     Route: 048
     Dates: start: 20070227, end: 20070303
  2. TALAVIR [Suspect]
     Indication: HERPES ZOSTER
     Dosage: 1 G, TID
     Route: 047
     Dates: start: 20070228, end: 20070303
  3. CARDIRENE [Concomitant]
     Route: 048
  4. COTAREG [Concomitant]
     Dosage: VALS 160 MG / HCT 12.5 MG
     Route: 048
  5. GLUCOPHAGE [Concomitant]
     Dosage: 3 GR
     Route: 048
  6. ACTOS [Concomitant]
     Dosage: 15 MG
     Route: 048

REACTIONS (7)
  - BALANCE DISORDER [None]
  - BLOOD CREATININE INCREASED [None]
  - BLOOD UREA INCREASED [None]
  - CONFUSIONAL STATE [None]
  - NAUSEA [None]
  - RENAL FAILURE ACUTE [None]
  - VERTIGO [None]
